FAERS Safety Report 7672409-4 (Version None)
Quarter: 2011Q3

REPORT INFORMATION
  Report Type: 
  Country: None (occurrence: None)
  Receive Date: 20110809
  Receipt Date: 20110804
  Transmission Date: 20111222
  Serious: Yes (Other)
  Sender: FDA-Public Use
  Company Number: FR-MERCK-1108FRA00033

PATIENT
  Age: 86 Year
  Sex: Female

DRUGS (5)
  1. FLUINDIONE [Suspect]
     Route: 048
     Dates: end: 20110517
  2. NOROXIN [Suspect]
     Indication: URINARY TRACT INFECTION
     Route: 048
     Dates: start: 20110512, end: 20110517
  3. SITAGLIPTIN PHOSPHATE [Concomitant]
     Indication: TYPE 2 DIABETES MELLITUS
     Route: 048
  4. REPAGLINIDE [Concomitant]
     Route: 065
  5. CANDESARTAN CILEXETIL AND HYDROCHLOROTHIAZIDE [Concomitant]
     Route: 065

REACTIONS (1)
  - INTERNATIONAL NORMALISED RATIO INCREASED [None]
